FAERS Safety Report 4409811-X (Version None)
Quarter: 2004Q3

REPORT INFORMATION
  Report Type: 
  Country: None (occurrence: None)
  Receive Date: 20040727
  Receipt Date: 20040727
  Transmission Date: 20050211
  Serious: No
  Sender: FDA-Public Use
  Company Number: None

PATIENT
  Sex: Female
  Weight: 60 kg

DRUGS (2)
  1. MORPHINE SULFATE [Suspect]
     Indication: PAIN
     Dosage: 2 MG/ML  PRN  INTRAVENOUS
     Route: 042
     Dates: start: 20040726, end: 20040726
  2. PHENERGAN [Suspect]
     Indication: NAUSEA
     Dosage: 12.5MG  Q6H PRN  INTRAVENOUS
     Route: 042
     Dates: start: 20040726, end: 20040726

REACTIONS (4)
  - AGGRESSION [None]
  - AGITATION [None]
  - CONFUSIONAL STATE [None]
  - DEPRESSED LEVEL OF CONSCIOUSNESS [None]
